FAERS Safety Report 10573277 (Version 1)
Quarter: 2014Q4

REPORT INFORMATION
  Report Type: Spontaneous
  Country: DE (occurrence: DE)
  Receive Date: 20141110
  Receipt Date: 20141110
  Transmission Date: 20150529
  Serious: Yes (Other)
  Sender: FDA-Public Use
  Company Number: DE-TEVA-519797GER

PATIENT
  Age: 1 Day
  Sex: Male

DRUGS (3)
  1. FINLEPSIN [Suspect]
     Active Substance: CARBAMAZEPINE
     Indication: EPILEPSY
     Dosage: 200 MILLIGRAM DAILY;
     Route: 064
     Dates: start: 20121207, end: 20130911
  2. FOLS?URE [Concomitant]
     Indication: PROPHYLAXIS OF NEURAL TUBE DEFECT
     Route: 064
  3. CLEXANE [Concomitant]
     Active Substance: ENOXAPARIN SODIUM
     Indication: FACTOR V LEIDEN MUTATION
     Route: 064
     Dates: start: 20121207, end: 20130911

REACTIONS (4)
  - Diarrhoea neonatal [Recovered/Resolved]
  - Foetal exposure during pregnancy [Unknown]
  - Small for dates baby [Recovering/Resolving]
  - Infantile vomiting [Recovered/Resolved]

NARRATIVE: CASE EVENT DATE: 201309
